FAERS Safety Report 21163201 (Version 9)
Quarter: 2023Q2

REPORT INFORMATION
  Report Type: Spontaneous
  Country: US (occurrence: US)
  Receive Date: 20220802
  Receipt Date: 20230605
  Transmission Date: 20230721
  Serious: Yes (Other)
  Sender: FDA-Public Use
  Company Number: US-PFIZER INC-PV202200034134

PATIENT
  Age: 68 Year
  Sex: Female

DRUGS (1)
  1. IBRANCE [Suspect]
     Active Substance: PALBOCICLIB
     Dosage: 125 MG

REACTIONS (15)
  - Second primary malignancy [Unknown]
  - Carcinoid syndrome [Unknown]
  - Alopecia [Not Recovered/Not Resolved]
  - Eating disorder [Unknown]
  - Oral infection [Unknown]
  - Onychomadesis [Unknown]
  - Fatigue [Not Recovered/Not Resolved]
  - Nail disorder [Unknown]
  - Emotional distress [Unknown]
  - Dizziness postural [Unknown]
  - Poor quality sleep [Unknown]
  - Nervousness [Unknown]
  - Malaise [Unknown]
  - Pain [Unknown]
  - Neoplasm progression [Unknown]

NARRATIVE: CASE EVENT DATE: 20221007
